FAERS Safety Report 6443131-7 (Version None)
Quarter: 2009Q4

REPORT INFORMATION
  Report Type: 
  Country: None (occurrence: None)
  Receive Date: 20091117
  Receipt Date: 20091112
  Transmission Date: 20100525
  Serious: Yes (Other)
  Sender: FDA-Public Use
  Company Number: A0816777A

PATIENT
  Age: 75 Year
  Sex: Male

DRUGS (11)
  1. ADVAIR DISKUS 100/50 [Suspect]
     Indication: CHRONIC OBSTRUCTIVE PULMONARY DISEASE
     Dosage: 1PUFF PER DAY
     Route: 055
  2. SEREVENT [Suspect]
     Indication: ASTHMA
     Route: 055
  3. FLOVENT [Concomitant]
  4. PRILOSEC [Concomitant]
  5. SPIRIVA [Concomitant]
  6. CALCIUM [Concomitant]
  7. PREDNISONE [Concomitant]
  8. COUMADIN [Concomitant]
  9. METOPROLOL [Concomitant]
  10. ZOCOR [Concomitant]
  11. FLOMAX [Concomitant]

REACTIONS (4)
  - ATRIAL FIBRILLATION [None]
  - OESOPHAGEAL RUPTURE [None]
  - PAIN [None]
  - PRURITUS [None]
